FAERS Safety Report 5726138-4 (Version None)
Quarter: 2008Q2

REPORT INFORMATION
  Report Type: 
  Country: None (occurrence: None)
  Receive Date: 20080502
  Receipt Date: 20080502
  Transmission Date: 20081010
  Serious: Yes (Death, Life-Threatening, Hospitalization, Disabling, Other)
  Sender: FDA-Public Use
  Company Number: None

PATIENT
  Age: 73 Year
  Sex: Male
  Weight: 83.9154 kg

DRUGS (1)
  1. HEPARIN [Suspect]
     Indication: ANTICOAGULANT THERAPY
     Dosage: STRONG SHOTS IN HIS STOMACH  ID
     Route: 026
     Dates: start: 20080201, end: 20080222

REACTIONS (17)
  - ANTIPHOSPHOLIPID ANTIBODIES POSITIVE [None]
  - ASTHENIA [None]
  - BRAIN DEATH [None]
  - CEREBRAL THROMBOSIS [None]
  - DIPLOPIA [None]
  - DRUG INEFFECTIVE [None]
  - FATIGUE [None]
  - GASTRIC HAEMORRHAGE [None]
  - HALLUCINATION, AUDITORY [None]
  - LOSS OF CONSCIOUSNESS [None]
  - LUNG DISORDER [None]
  - MUSCULOSKELETAL STIFFNESS [None]
  - OESOPHAGEAL RUPTURE [None]
  - PAIN IN EXTREMITY [None]
  - PHARYNGOLARYNGEAL PAIN [None]
  - SLEEP DISORDER [None]
  - VOMITING [None]
